FAERS Safety Report 6445442-8 (Version None)
Quarter: 2009Q4

REPORT INFORMATION
  Report Type: 
  Country: None (occurrence: None)
  Receive Date: 20091118
  Receipt Date: 20091112
  Transmission Date: 20100525
  Serious: Yes (Death)
  Sender: FDA-Public Use
  Company Number: PHHY2009BR49475

PATIENT
  Sex: Female

DRUGS (4)
  1. DIOVAN AMLO [Suspect]
     Dosage: 160/5MG, UNK
  2. DIOVAN AMLO FIX [Suspect]
     Dosage: 160/5MG, UNK
  3. DIOVAN AMLO FIX [Suspect]
     Dosage: 160/10MG, UNK
  4. VITALUX PLUS (NVO) [Suspect]

REACTIONS (1)
  - DEATH [None]
